FAERS Safety Report 13076621 (Version 1)
Quarter: 2016Q4

REPORT INFORMATION
  Report Type: Spontaneous
  Country: IT (occurrence: IT)
  Receive Date: 20161230
  Receipt Date: 20161230
  Transmission Date: 20170207
  Serious: Yes (Hospitalization)
  Sender: FDA-Public Use
  Company Number: IT-TEVA-723783ACC

PATIENT
  Sex: Male
  Weight: 64 kg

DRUGS (1)
  1. OLANZAPINA TEVA - 5 MG COMPRESSE ORODISPERSIBILI - TEVA B.V. [Suspect]
     Active Substance: OLANZAPINE
     Indication: PRODUCT USED FOR UNKNOWN INDICATION
     Dosage: 5 MILLIGRAM DAILY;
     Route: 048
     Dates: start: 20160919, end: 20160923

REACTIONS (2)
  - Product substitution issue [Recovering/Resolving]
  - Drug ineffective [Recovering/Resolving]
